FAERS Safety Report 16705114 (Version 3)
Quarter: 2022Q4

REPORT INFORMATION
  Report Type: Report from Study
  Country: JP (occurrence: JP)
  Receive Date: 20190815
  Receipt Date: 20221108
  Transmission Date: 20230112
  Serious: Yes (Death, Other)
  Sender: FDA-Public Use
  Company Number: JP-KYOWAKIRIN-2019AKK012661

PATIENT
  Age: 70 Year
  Sex: Male

DRUGS (10)
  1. DARBEPOETIN ALFA [Suspect]
     Active Substance: DARBEPOETIN ALFA
     Indication: Myelodysplastic syndrome
     Dosage: 240 MICROGRAM, Q4WK
     Route: 058
     Dates: start: 20180409, end: 20180604
  2. DARBEPOETIN ALFA [Suspect]
     Active Substance: DARBEPOETIN ALFA
     Dosage: 240 MICROGRAM, QWK
     Route: 058
     Dates: start: 20181203, end: 20181225
  3. DARBEPOETIN ALFA [Suspect]
     Active Substance: DARBEPOETIN ALFA
     Dosage: 240 MICROGRAM, Q3WK
     Route: 058
     Dates: start: 20180618, end: 20180709
  4. DARBEPOETIN ALFA [Suspect]
     Active Substance: DARBEPOETIN ALFA
     Dosage: 240 MICROGRAM, Q2WK
     Route: 058
     Dates: start: 20180723, end: 20181126
  5. DARBEPOETIN ALFA [Suspect]
     Active Substance: DARBEPOETIN ALFA
     Dosage: 240 MICROGRAM, QWK
     Route: 058
     Dates: start: 20190108, end: 20190319
  6. JADENU [Concomitant]
     Active Substance: DEFERASIROX
     Indication: Iron overload
     Dosage: 90 MILLIGRAM
     Route: 048
     Dates: start: 20181112, end: 20181125
  7. JADENU [Concomitant]
     Active Substance: DEFERASIROX
     Dosage: 180 MILLIGRAM
     Route: 048
     Dates: start: 20181126, end: 20181216
  8. JADENU [Concomitant]
     Active Substance: DEFERASIROX
     Dosage: 270 MILLIGRAM
     Route: 048
     Dates: start: 20181217, end: 20190204
  9. JADENU [Concomitant]
     Active Substance: DEFERASIROX
     Dosage: 360 MILLIGRAM
     Route: 048
     Dates: start: 20190205, end: 20190401
  10. JADENU [Concomitant]
     Active Substance: DEFERASIROX
     Dosage: 450 MILLIGRAM
     Route: 048
     Dates: start: 20190402

REACTIONS (3)
  - Transformation to acute myeloid leukaemia [Unknown]
  - Peritonitis [Fatal]
  - Iron overload [Not Recovered/Not Resolved]

NARRATIVE: CASE EVENT DATE: 20181112
